FAERS Safety Report 5067171-8 (Version None)
Quarter: 2006Q3

REPORT INFORMATION
  Report Type: 
  Country: None (occurrence: None)
  Receive Date: 20060727
  Receipt Date: 20060714
  Transmission Date: 20061208
  Serious: Yes (Hospitalization, Other)
  Sender: FDA-Public Use
  Company Number: 2006077807

PATIENT
  Age: 51 Year
  Sex: Female
  Weight: 156.491 kg

DRUGS (10)
  1. SILDENAFIL ( PAH)  (SILDENAFIL) [Suspect]
     Indication: PULMONARY HYPERTENSION
     Dosage: 180 MG (60 MG,3 IN 1 D), ORAL
     Route: 048
  2. WARFARIN SODIUM [Concomitant]
  3. SYNTHROID [Concomitant]
  4. DARVOCET [Concomitant]
  5. BUMEX [Concomitant]
  6. FLEXERIL [Concomitant]
  7. LEXAPRO [Concomitant]
  8. ADVAIR DISKUS 100/50 [Concomitant]
  9. ALL OTHER THERAPEUTICS PRODUCTS [Concomitant]
  10. ALLERGY MEDICATION [Concomitant]

REACTIONS (13)
  - ACTIVITIES OF DAILY LIVING IMPAIRED [None]
  - BALANCE DISORDER [None]
  - BRAIN NATRIURETIC PEPTIDE INCREASED [None]
  - CARBON DIOXIDE INCREASED [None]
  - CELLULITIS [None]
  - CONDITION AGGRAVATED [None]
  - CYANOSIS [None]
  - DYSPNOEA [None]
  - GAIT DISTURBANCE [None]
  - OXYGEN SATURATION DECREASED [None]
  - PHARMACEUTICAL PRODUCT COMPLAINT [None]
  - PULMONARY HYPERTENSION [None]
  - RIGHT VENTRICULAR FAILURE [None]
